FAERS Safety Report 9352399 (Version 2)
Quarter: 2013Q4

REPORT INFORMATION
  Report Type: Report from Study
  Country: BR (occurrence: BR)
  Receive Date: 20130617
  Receipt Date: 20131113
  Transmission Date: 20140711
  Serious: Yes (Hospitalization, Other)
  Sender: FDA-Public Use
  Company Number: BR-ELI_LILLY_AND_COMPANY-BR201306002704

PATIENT
  Age: 91 Year
  Sex: Female

DRUGS (7)
  1. TERIPARATIDE [Suspect]
     Indication: OSTEOPOROSIS
     Dosage: 20 UG, QD
     Route: 058
  2. HALDOL [Concomitant]
     Route: 065
  3. AKINETON                           /00079501/ [Concomitant]
     Route: 065
  4. RIVOTRIL [Concomitant]
     Route: 065
  5. VASOGARD [Concomitant]
     Indication: PERIPHERAL VASCULAR DISORDER
     Dosage: 100 MG, BID
     Route: 065
  6. ATENOLOL [Concomitant]
     Indication: BLOOD PRESSURE
     Dosage: 50 MG, EACH MORNING
     Route: 065
  7. PARACETAMOL [Concomitant]
     Indication: PAIN
     Dosage: 750 MG, BID
     Route: 065

REACTIONS (6)
  - Necrosis [Unknown]
  - Angiopathy [Unknown]
  - Limb injury [Not Recovered/Not Resolved]
  - Loss of consciousness [Unknown]
  - Lack of spontaneous speech [Not Recovered/Not Resolved]
  - Feeding disorder [Not Recovered/Not Resolved]
